FAERS Safety Report 5420085-3 (Version None)
Quarter: 2007Q3

REPORT INFORMATION
  Report Type: 
  Country: None (occurrence: None)
  Receive Date: 20070820
  Receipt Date: 20070809
  Transmission Date: 20080115
  Serious: Yes (Death)
  Sender: FDA-Public Use
  Company Number: JP-SHR-JP-SHR-04-022975

PATIENT
  Age: 13 Year
  Sex: Female

DRUGS (4)
  1. FLUDARA [Suspect]
     Dosage: 30 MG/M2, 1X/DAY
     Route: 065
     Dates: start: 20030428, end: 20030503
  2. BUSULFAN [Concomitant]
     Dosage: 4 MG/KG, 1X/DAY
     Route: 065
     Dates: start: 20030430, end: 20030501
  3. CYCLOSPORINE [Concomitant]
     Indication: PROPHYLAXIS AGAINST GRAFT VERSUS HOST DISEASE
     Dosage: SERUM CONCENT 100-200 NG/ML
     Route: 041
     Dates: start: 20030505
  4. METHOTREXATE [Concomitant]
     Indication: PROPHYLAXIS AGAINST GRAFT VERSUS HOST DISEASE
     Route: 065

REACTIONS (7)
  - ASCITES [None]
  - BONE SARCOMA [None]
  - MALIGNANT NEOPLASM PROGRESSION [None]
  - MALIGNANT PLEURAL EFFUSION [None]
  - PLEURAL HAEMORRHAGE [None]
  - PULMONARY OEDEMA [None]
  - RESPIRATORY FAILURE [None]
